FAERS Safety Report 8915786 (Version 2)
Quarter: 2012Q4

REPORT INFORMATION
  Report Type: 
  Country: BR (occurrence: BR)
  Receive Date: 20121119
  Receipt Date: 20121231
  Transmission Date: 20130627
  Serious: Yes (Hospitalization)
  Sender: FDA-Public Use
  Company Number: BR-BRISTOL-MYERS SQUIBB COMPANY-17115957

PATIENT
  Age: 65 Year
  Sex: Male
  Weight: 68 kg

DRUGS (10)
  1. APROZIDE [Suspect]
     Indication: HYPERTENSION
     Dosage: 1 Df:1 tab of 300mg+12.5mg C.tabs
Dose incrsd 1Df:2 tabs(2012)
2008-unk
2012-2012
2012-ong
     Route: 048
     Dates: start: 2008
  2. METFORMIN HCL [Concomitant]
     Indication: DIABETES MELLITUS
     Dosage: 1 Df:1 tab
metformin 800mg
     Route: 048
     Dates: start: 2007
  3. ASPIRIN [Concomitant]
     Indication: DIABETES MELLITUS
     Dates: start: 2009
  4. ASPIRIN [Concomitant]
     Indication: HYPERTENSION
     Dates: start: 2009
  5. AMARYL [Concomitant]
     Indication: DIABETES MELLITUS
     Dosage: 1 tab
     Dates: start: 2009
  6. AMARYL [Concomitant]
     Indication: HYPERTENSION
     Dosage: 1 tab
     Dates: start: 2009
  7. FERROUS SULFATE [Concomitant]
     Indication: DIABETES MELLITUS
     Dosage: 1DF:1 tab
     Dates: start: 2009
  8. FERROUS SULFATE [Concomitant]
     Indication: HYPERTENSION
     Dosage: 1DF:1 tab
     Dates: start: 2009
  9. ZEBETA [Concomitant]
     Indication: DIABETES MELLITUS
     Dosage: 1tab at dinner
     Dates: start: 2009
  10. ZEBETA [Concomitant]
     Indication: HYPERTENSION
     Dosage: 1tab at dinner
     Dates: start: 2009

REACTIONS (4)
  - Myocardial infarction [Recovered/Resolved]
  - Cardiomyopathy [Unknown]
  - Hypertension [Recovered/Resolved]
  - Overdose [Unknown]
